FAERS Safety Report 25647812 (Version 1)
Quarter: 2025Q3

REPORT INFORMATION
  Report Type: Spontaneous
  Country: GB (occurrence: GB)
  Receive Date: 20250806
  Receipt Date: 20250806
  Transmission Date: 20251020
  Serious: Yes (Other)
  Sender: AUROBINDO
  Company Number: GB-MHRA-MED-202507281418278270-FYVMQ

PATIENT
  Age: 21 Year
  Sex: Female
  Weight: 95 kg

DRUGS (1)
  1. SUMATRIPTAN [Suspect]
     Active Substance: SUMATRIPTAN
     Indication: Migraine
     Route: 065
     Dates: start: 20250727, end: 20250728

REACTIONS (1)
  - Breast engorgement [Not Recovered/Not Resolved]

NARRATIVE: CASE EVENT DATE: 20250727
